FAERS Safety Report 4813162-9 (Version None)
Quarter: 2005Q4

REPORT INFORMATION
  Report Type: 
  Country: None (occurrence: None)
  Receive Date: 20051028
  Receipt Date: 20051019
  Transmission Date: 20060501
  Serious: Yes (Other)
  Sender: FDA-Public Use
  Company Number: US-SANOFI-SYNTHELABO-A03200503342

PATIENT
  Sex: Female
  Weight: 50.34 kg

DRUGS (7)
  1. PLAVIX [Suspect]
     Indication: STENT PLACEMENT
     Route: 048
     Dates: start: 20040601
  2. BENICAR [Concomitant]
     Route: 048
  3. HYDROCHLOROTHIAZIDE [Concomitant]
     Route: 048
  4. ZETIA [Concomitant]
     Route: 048
  5. LIPITOR [Concomitant]
     Route: 048
  6. LOPRESSOR [Concomitant]
     Route: 048
  7. ECOTRIN [Concomitant]
     Route: 048

REACTIONS (2)
  - PSEUDO LYMPHOMA [None]
  - RASH [None]
